FAERS Safety Report 8438508-4 (Version None)
Quarter: 2012Q2

REPORT INFORMATION
  Report Type: 
  Country: None (occurrence: None)
  Receive Date: 20120615
  Receipt Date: 20120606
  Transmission Date: 20120825
  Serious: Yes (Hospitalization)
  Sender: FDA-Public Use
  Company Number: KW-BIOGENIDEC-2012BI020836

PATIENT
  Age: 41 Year
  Sex: Female

DRUGS (6)
  1. IRON SUPPLEMENT [Concomitant]
  2. LIPITOR [Concomitant]
     Indication: DYSLIPIDAEMIA
     Route: 048
  3. TYSABRI [Suspect]
     Indication: RELAPSING-REMITTING MULTIPLE SCLEROSIS
     Route: 042
     Dates: start: 20100421
  4. METFORMIN HCL [Concomitant]
     Indication: WEIGHT DECREASED
     Route: 048
  5. CALCIUM AND VIT D [Concomitant]
     Route: 048
  6. TOLTERODINE TARTRATE [Concomitant]

REACTIONS (1)
  - HERPES ZOSTER OPHTHALMIC [None]
